FAERS Safety Report 5917302-X (Version None)
Quarter: 2008Q4

REPORT INFORMATION
  Report Type: 
  Country: None (occurrence: None)
  Receive Date: 20081009
  Receipt Date: 20081009
  Transmission Date: 20090506
  Serious: Yes (Other)
  Sender: FDA-Public Use
  Company Number: None

PATIENT
  Age: 60 Year
  Sex: Male
  Weight: 68.0396 kg

DRUGS (2)
  1. PREZISTA [Suspect]
     Indication: HIV INFECTION
     Dosage: 1 BID PO
     Route: 048
     Dates: start: 20080926
  2. PREZISTA [Suspect]
     Dosage: 2 BID PO
     Route: 048

REACTIONS (3)
  - DIARRHOEA [None]
  - HEADACHE [None]
  - NAUSEA [None]
